FAERS Safety Report 4591027-8 (Version None)
Quarter: 2005Q1

REPORT INFORMATION
  Report Type: 
  Country: None (occurrence: None)
  Receive Date: 20050222
  Receipt Date: 20050222
  Transmission Date: 20050727
  Serious: Yes (Other)
  Sender: FDA-Public Use
  Company Number: None

PATIENT
  Sex: Male
  Weight: 97.5234 kg

DRUGS (1)
  1. LEVAQUIN [Suspect]
     Indication: NEUTROPENIA
     Dosage: 1 TABLET   ONCE DAILY   ORAL
     Route: 048
     Dates: start: 20050117, end: 20050202

REACTIONS (6)
  - EYE PAIN [None]
  - OCULAR HYPERAEMIA [None]
  - OEDEMA PERIPHERAL [None]
  - PAIN IN EXTREMITY [None]
  - RASH [None]
  - TENDON DISORDER [None]
